FAERS Safety Report 9473656 (Version 1)
Quarter: 2013Q3

REPORT INFORMATION
  Report Type: Spontaneous
  Country: US (occurrence: US)
  Receive Date: 20130823
  Receipt Date: 20130823
  Transmission Date: 20140515
  Serious: Yes (Other)
  Sender: FDA-Public Use
  Company Number: US-BRISTOL-MYERS SQUIBB COMPANY-16841751

PATIENT
  Age: 30 Year
  Sex: Male

DRUGS (3)
  1. SPRYCEL [Suspect]
     Indication: CHRONIC MYELOID LEUKAEMIA
  2. IDARUBICIN [Suspect]
  3. CYTARABINE [Suspect]

REACTIONS (2)
  - Blast crisis in myelogenous leukaemia [Unknown]
  - Headache [Unknown]
